FAERS Safety Report 7972847-6 (Version None)
Quarter: 2011Q4

REPORT INFORMATION
  Report Type: 
  Country: None (occurrence: None)
  Receive Date: 20111213
  Receipt Date: 20111205
  Transmission Date: 20120403
  Serious: Yes (Hospitalization, Other)
  Sender: FDA-Public Use
  Company Number: BR-US-EMD SERONO, INC.-7097747

PATIENT
  Sex: Female

DRUGS (10)
  1. AMLODIPINE [Concomitant]
  2. ACETAMINOPHEN [Concomitant]
  3. PAROXETINE HCL [Concomitant]
  4. ASPIRIN [Concomitant]
  5. REBIF [Suspect]
     Indication: RELAPSING-REMITTING MULTIPLE SCLEROSIS
     Route: 058
     Dates: start: 19990101
  6. OMEPRAZOLE [Concomitant]
  7. HYDROCHLOROTHIAZIDE [Concomitant]
  8. AMITRIPTYLINE HCL [Concomitant]
  9. FOLIC ACID [Concomitant]
  10. CAPTOPRIL [Concomitant]

REACTIONS (4)
  - SYSTEMIC LUPUS ERYTHEMATOSUS [None]
  - VISUAL ACUITY REDUCED [None]
  - TYPE 2 DIABETES MELLITUS [None]
  - SPEECH DISORDER [None]
